FAERS Safety Report 4598038-7 (Version None)
Quarter: 2005Q1

REPORT INFORMATION
  Report Type: 
  Country: None (occurrence: None)
  Receive Date: 20050207
  Receipt Date: 20040205
  Transmission Date: 20050727
  Serious: Yes (Hospitalization)
  Sender: FDA-Public Use
  Company Number: MEDI-0001686

PATIENT
  Sex: Female

DRUGS (4)
  1. ETHYOL [Suspect]
     Indication: CHEMOTHERAPY
     Dosage: SUBCUTANEOUS
     Route: 058
     Dates: start: 20040120, end: 20040128
  2. ETHYOL [Suspect]
     Indication: RADIOTHERAPY
     Dosage: SUBCUTANEOUS
     Route: 058
     Dates: start: 20040120, end: 20040128
  3. RADIATION THERAPY [Concomitant]
  4. CHEMOTHERAPY DRUG [Concomitant]

REACTIONS (2)
  - INJECTION SITE RASH [None]
  - PYREXIA [None]
